FAERS Safety Report 10033311 (Version 2)
Quarter: 2014Q2

REPORT INFORMATION
  Report Type: Spontaneous
  Country: DE (occurrence: DE)
  Receive Date: 20140325
  Receipt Date: 20140415
  Transmission Date: 20141212
  Serious: Yes (Other)
  Sender: FDA-Public Use
  Company Number: DE-ROCHE-1370741

PATIENT
  Sex: Male

DRUGS (6)
  1. MABTHERA [Suspect]
     Indication: RHEUMATOID ARTHRITIS
     Dosage: FURTHER ADMINISTRATION ON 04-DEC-2013, ONGOING
     Route: 042
     Dates: start: 20131120
  2. ROACTEMRA [Suspect]
     Indication: RHEUMATOID ARTHRITIS
     Route: 042
  3. ENBREL [Suspect]
     Indication: RHEUMATOID ARTHRITIS
     Route: 058
     Dates: start: 20120718, end: 20130115
  4. PREDNISOLON [Concomitant]
     Indication: RHEUMATOID ARTHRITIS
     Route: 065
  5. TILIDIN [Concomitant]
     Indication: RHEUMATOID ARTHRITIS
     Route: 065
  6. VIGANTOLETTEN [Concomitant]
     Route: 065

REACTIONS (1)
  - Peyronie^s disease [Not Recovered/Not Resolved]
